FAERS Safety Report 7880377-5 (Version None)
Quarter: 2011Q4

REPORT INFORMATION
  Report Type: 
  Country: None (occurrence: None)
  Receive Date: 20111101
  Receipt Date: 20111025
  Transmission Date: 20120403
  Serious: Yes (Other)
  Sender: FDA-Public Use
  Company Number: PHHY2011JP83003

PATIENT
  Age: 73 Year

DRUGS (2)
  1. FLUOROURACIL [Suspect]
     Indication: COLORECTAL CANCER
     Route: 042
  2. BEVACIZUMAB [Suspect]
     Indication: COLORECTAL CANCER
     Dosage: 5 MG/KG, UNK
     Route: 042

REACTIONS (3)
  - PERIODONTAL DISEASE [None]
  - DENTAL CARIES [None]
  - STOMATITIS [None]
